FAERS Safety Report 15943009 (Version 3)
Quarter: 2019Q1

REPORT INFORMATION
  Report Type: Spontaneous
  Country: US (occurrence: US)
  Receive Date: 20190210
  Receipt Date: 20190307
  Transmission Date: 20190417
  Serious: Yes (Other)
  Sender: FDA-Public Use
  Company Number: US-ASTRAZENECA-2018SF25792

PATIENT
  Sex: Male

DRUGS (31)
  1. LAMOTRIGINE. [Concomitant]
     Active Substance: LAMOTRIGINE
     Route: 065
     Dates: start: 20140731
  2. ACYCLOVIR. [Concomitant]
     Active Substance: ACYCLOVIR
     Route: 065
     Dates: start: 20140731
  3. POTASSIUM CHLORIDE. [Concomitant]
     Active Substance: POTASSIUM CHLORIDE
     Route: 065
     Dates: start: 20160507
  4. CAMPRAL [Concomitant]
     Active Substance: ACAMPROSATE CALCIUM
     Route: 065
     Dates: start: 20110131
  5. ONDANSETRON [Concomitant]
     Active Substance: ONDANSETRON
     Route: 065
     Dates: start: 20170321
  6. PROPRANOLOL [Concomitant]
     Active Substance: PROPRANOLOL HYDROCHLORIDE
     Route: 065
     Dates: start: 20170712
  7. SEROQUEL [Concomitant]
     Active Substance: QUETIAPINE FUMARATE
     Route: 065
     Dates: start: 20110506
  8. NEXIUM [Suspect]
     Active Substance: ESOMEPRAZOLE MAGNESIUM
     Route: 048
     Dates: start: 200909, end: 201301
  9. MIRTAZAPINE. [Concomitant]
     Active Substance: MIRTAZAPINE
     Route: 065
     Dates: start: 20140409
  10. GABAPENTIN. [Concomitant]
     Active Substance: GABAPENTIN
     Route: 065
  11. SPIRONOLACTONE. [Concomitant]
     Active Substance: SPIRONOLACTONE
     Route: 065
     Dates: start: 20160204
  12. CLINDAMYCIN. [Concomitant]
     Active Substance: CLINDAMYCIN
     Route: 065
     Dates: start: 20160918
  13. SULFAMETHOXAZOLE-TMP DS [Concomitant]
     Active Substance: SULFAMETHOXAZOLE\TRIMETHOPRIM
     Route: 065
     Dates: start: 20130830
  14. ROXICET [Concomitant]
     Active Substance: ACETAMINOPHEN\OXYCODONE HYDROCHLORIDE
     Route: 065
     Dates: start: 20140731
  15. DRONABINOL. [Concomitant]
     Active Substance: DRONABINOL
     Route: 065
     Dates: start: 20150416
  16. NEXIUM [Suspect]
     Active Substance: ESOMEPRAZOLE MAGNESIUM
     Route: 048
     Dates: start: 20090702, end: 20130125
  17. CEPHALEXIN. [Concomitant]
     Active Substance: CEPHALEXIN
     Route: 065
     Dates: start: 20130830
  18. TRAZODONE [Concomitant]
     Active Substance: TRAZODONE HYDROCHLORIDE
     Route: 065
     Dates: start: 20140221
  19. NALTREXONE [Concomitant]
     Active Substance: NALTREXONE
     Route: 065
     Dates: start: 20140409
  20. SERTRALINE HYDROCHLORIDE. [Concomitant]
     Active Substance: SERTRALINE HYDROCHLORIDE
     Route: 065
     Dates: start: 20140409
  21. OMEPRAZOLE. [Concomitant]
     Active Substance: OMEPRAZOLE
     Route: 065
     Dates: start: 20140929
  22. PANTOPRAZOLE [Concomitant]
     Active Substance: PANTOPRAZOLE
     Route: 065
     Dates: start: 20150806
  23. HYDROMORPHONE HYDROCHLORIDE. [Concomitant]
     Active Substance: HYDROMORPHONE HYDROCHLORIDE
     Route: 065
     Dates: start: 20100409
  24. CHLORDIAZEPOXIDE. [Concomitant]
     Active Substance: CHLORDIAZEPOXIDE
     Route: 065
     Dates: start: 20080925
  25. AMITRIPTYLINE HYDROCHLORIDE. [Concomitant]
     Active Substance: AMITRIPTYLINE HYDROCHLORIDE
     Route: 065
     Dates: start: 20090706
  26. CLONAZEPAM. [Concomitant]
     Active Substance: CLONAZEPAM
     Route: 065
     Dates: start: 20140221
  27. ESCITALOPRAM [Concomitant]
     Active Substance: ESCITALOPRAM OXALATE
     Route: 065
     Dates: start: 20170712
  28. RISPERIDONE. [Concomitant]
     Active Substance: RISPERIDONE
     Route: 065
     Dates: start: 20110706
  29. ALLOPURINOL. [Concomitant]
     Active Substance: ALLOPURINOL
     Route: 065
     Dates: start: 20080905
  30. OXCARBAZEPINE. [Concomitant]
     Active Substance: OXCARBAZEPINE
     Route: 065
     Dates: start: 20140409
  31. XIFAXAN [Concomitant]
     Active Substance: RIFAXIMIN
     Route: 065
     Dates: start: 20150416

REACTIONS (5)
  - End stage renal disease [Unknown]
  - Renal injury [Unknown]
  - Chronic kidney disease [Unknown]
  - Acute kidney injury [Unknown]
  - Nephrogenic anaemia [Unknown]
